FAERS Safety Report 6945972-6 (Version None)
Quarter: 2010Q3

REPORT INFORMATION
  Report Type: 
  Country: None (occurrence: None)
  Receive Date: 20100824
  Receipt Date: 20100811
  Transmission Date: 20110219
  Serious: Yes (Hospitalization)
  Sender: FDA-Public Use
  Company Number: 2010MA001785

PATIENT
  Age: 31 Year
  Sex: Male

DRUGS (1)
  1. SULFATRIM [Suspect]

REACTIONS (26)
  - ARTHROPATHY [None]
  - BILIARY TRACT DISORDER [None]
  - BLOOD TRIGLYCERIDES INCREASED [None]
  - CARDIAC DISORDER [None]
  - CHILLS [None]
  - DERMATITIS [None]
  - DERMATITIS EXFOLIATIVE [None]
  - EPIDERMAL NECROSIS [None]
  - FACE OEDEMA [None]
  - JUVENILE ARTHRITIS [None]
  - LIVER DISORDER [None]
  - LUNG DISORDER [None]
  - MYOCARDITIS [None]
  - NEPHRITIS [None]
  - NERVOUS SYSTEM DISORDER [None]
  - NEUTROPHIL COUNT INCREASED [None]
  - OROPHARYNGEAL DISCOMFORT [None]
  - PANCREATIC DISORDER [None]
  - PERIORBITAL OEDEMA [None]
  - RASH MACULAR [None]
  - RASH PRURITIC [None]
  - RENAL DISORDER [None]
  - SERUM FERRITIN INCREASED [None]
  - SKIN LESION [None]
  - VITAMIN D DECREASED [None]
  - WHITE BLOOD CELL COUNT INCREASED [None]
